FAERS Safety Report 6360272-3 (Version None)
Quarter: 2009Q3

REPORT INFORMATION
  Report Type: 
  Country: None (occurrence: None)
  Receive Date: 20090917
  Receipt Date: 20090909
  Transmission Date: 20100115
  Serious: Yes (Other)
  Sender: FDA-Public Use
  Company Number: US-GENENTECH-284698

PATIENT
  Sex: Female

DRUGS (4)
  1. RITUXAN [Suspect]
     Indication: ANGIOCENTRIC LYMPHOMA
     Dosage: 375 MG/M2, 1/WEEK
     Route: 042
     Dates: start: 20071001, end: 20071113
  2. RITUXAN [Suspect]
     Dosage: 375 MG/M2, Q3M
     Route: 042
     Dates: start: 20071001, end: 20071113
  3. RITUXAN [Suspect]
     Dosage: UNK MG/M2, UNK
     Route: 042
     Dates: start: 20080304, end: 20080325
  4. RITUXAN [Suspect]
     Dosage: UNK
     Route: 042
     Dates: start: 20080624, end: 20090317

REACTIONS (1)
  - PROGRESSIVE MULTIFOCAL LEUKOENCEPHALOPATHY [None]
